FAERS Safety Report 4895449-7 (Version None)
Quarter: 2005Q4

REPORT INFORMATION
  Report Type: 
  Country: None (occurrence: None)
  Receive Date: 20051221
  Receipt Date: 20051104
  Transmission Date: 20060501
  Serious: No
  Sender: FDA-Public Use
  Company Number: US-YAMANOUCHI-YPA20050576

PATIENT
  Age: 85 Year
  Sex: Female

DRUGS (16)
  1. VESICARE [Suspect]
     Indication: HYPERTONIC BLADDER
     Dosage: 5 MG QD PO
     Route: 048
     Dates: start: 20050915, end: 20051020
  2. ALLEGRA [Concomitant]
  3. NORVASC [Concomitant]
  4. BENICAR [Concomitant]
  5. DYAZIDE [Concomitant]
  6. HYDROCHLOROTHIAZIDE [Concomitant]
  7. LIPITOR [Concomitant]
  8. LIPITOR [Concomitant]
  9. ZETIA [Concomitant]
  10. POTASSIUM [Concomitant]
  11. CENTRUM [Concomitant]
  12. OSCAL [Concomitant]
  13. VITAMIN B COMPLEX CAP [Concomitant]
  14. ASCORBIC ACID [Concomitant]
  15. ZINC [Concomitant]
  16. ESTRACE VAGINAL CREAM [Concomitant]

REACTIONS (2)
  - BLOOD PRESSURE INCREASED [None]
  - VISION BLURRED [None]
